FAERS Safety Report 7410064-9 (Version None)
Quarter: 2011Q2

REPORT INFORMATION
  Report Type: 
  Country: None (occurrence: None)
  Receive Date: 20110412
  Receipt Date: 20110330
  Transmission Date: 20111010
  Serious: Yes (Other)
  Sender: FDA-Public Use
  Company Number: US-ELI_LILLY_AND_COMPANY-US201004006915

PATIENT
  Sex: Female

DRUGS (17)
  1. PRAMIPEXOLE DIHYDROCHLORIDE [Concomitant]
     Indication: RESTLESS LEGS SYNDROME
  2. FORTEO [Suspect]
     Indication: OSTEOPOROSIS
     Dosage: 20 UG, DAILY (1/D)
     Dates: start: 20080801
  3. COREG [Concomitant]
  4. VITAMIN E [Concomitant]
     Dosage: 800 MG, UNK
  5. CARBAMAZEPINE [Concomitant]
     Indication: NEUROPATHY PERIPHERAL
  6. C-VITAMIN [Concomitant]
  7. VITAMIN B-12 [Concomitant]
  8. BENAZEPRIL HYDROCHLORIDE [Concomitant]
     Indication: BLOOD PRESSURE
  9. FORTEO [Suspect]
     Dosage: 20 UG, QD
  10. IRON [Concomitant]
  11. PRAVASTATIN [Concomitant]
  12. ALPHA LIPOIC ACID [Concomitant]
  13. AMLODIPINE [Concomitant]
  14. FLUTICASONE [Concomitant]
     Indication: HYPERSENSITIVITY
  15. VITAMIN D [Concomitant]
  16. NEXIUM [Concomitant]
  17. NIACIN [Concomitant]

REACTIONS (12)
  - PELVIC FRACTURE [None]
  - CATHETER SITE HAEMATOMA [None]
  - MITRAL VALVE INCOMPETENCE [None]
  - BONE PAIN [None]
  - CARPAL TUNNEL SYNDROME [None]
  - POST PROCEDURAL HAEMORRHAGE [None]
  - RIB FRACTURE [None]
  - MUSCULOSKELETAL CHEST PAIN [None]
  - MITRAL VALVE PROLAPSE [None]
  - ASTHENIA [None]
  - SPINAL FRACTURE [None]
  - FALL [None]
